FAERS Safety Report 10615336 (Version 2)
Quarter: 2014Q4

REPORT INFORMATION
  Report Type: Spontaneous
  Country: US (occurrence: US)
  Receive Date: 20141201
  Receipt Date: 20141218
  Transmission Date: 20150529
  Serious: No
  Sender: FDA-Public Use
  Company Number: US-PFIZER INC-2014323192

PATIENT
  Age: 76 Year
  Sex: Male

DRUGS (2)
  1. GLEEVEC [Suspect]
     Active Substance: IMATINIB MESYLATE
     Dosage: UNK
  2. SUTENT [Suspect]
     Active Substance: SUNITINIB MALATE
     Indication: ABDOMINAL MASS
     Dosage: 37 MG, 1X/DAY
     Route: 048
     Dates: start: 20110831

REACTIONS (3)
  - Product use issue [Unknown]
  - Swelling [Unknown]
  - Lip swelling [Unknown]
